FAERS Safety Report 24155172 (Version 2)
Quarter: 2024Q4

REPORT INFORMATION
  Report Type: Spontaneous
  Country: FR (occurrence: FR)
  Receive Date: 20240731
  Receipt Date: 20241024
  Transmission Date: 20250115
  Serious: Yes (Hospitalization)
  Sender: CHEPLAPHARM
  Company Number: None

PATIENT
  Age: 79 Year
  Sex: Female

DRUGS (10)
  1. PREDNISOLONE [Suspect]
     Active Substance: PREDNISOLONE
     Indication: Chronic obstructive pulmonary disease
     Dosage: DAILY DOSE: 40 MILLIGRAM
     Route: 048
     Dates: start: 20240704, end: 20240707
  2. PREDNISOLONE [Suspect]
     Active Substance: PREDNISOLONE
     Indication: Chronic obstructive pulmonary disease
     Dosage: DAILY DOSE: 20 MILLIGRAM
     Route: 048
     Dates: start: 20240707, end: 20240708
  3. LEVOFLOXACIN [Suspect]
     Active Substance: LEVOFLOXACIN
     Indication: Chronic obstructive pulmonary disease
     Dosage: DAILY DOSE: 500 MILLIGRAM
     Route: 048
     Dates: start: 20240704, end: 20240708
  4. MONTELUKAST SODIUM [Suspect]
     Active Substance: MONTELUKAST SODIUM
     Indication: Chronic obstructive pulmonary disease
     Dosage: DAILY DOSE: 10 MILLIGRAM
     Route: 048
     Dates: start: 20240704, end: 20240708
  5. FLUOXETINE [Concomitant]
     Active Substance: FLUOXETINE HYDROCHLORIDE
     Dosage: DAILY DOSE: 60 MILLIGRAM
  6. ALPRAZOLAM [Concomitant]
     Active Substance: ALPRAZOLAM
     Dosage: 1-1-1
  7. NEFOPAM [Concomitant]
     Active Substance: NEFOPAM
     Dosage: 2/D
  8. TRIMEPRAZINE [Concomitant]
     Active Substance: TRIMEPRAZINE
     Dosage: AT BEDTIME
  9. EBASTINE [Concomitant]
     Active Substance: EBASTINE
     Dosage: 1/D
  10. DESLORATADINE [Concomitant]
     Active Substance: DESLORATADINE
     Dosage: 1/D

REACTIONS (1)
  - Mania [Not Recovered/Not Resolved]

NARRATIVE: CASE EVENT DATE: 20240707
